FAERS Safety Report 4423937-6 (Version None)
Quarter: 2004Q3

REPORT INFORMATION
  Report Type: 
  Country: None (occurrence: None)
  Receive Date: 20040805
  Receipt Date: 20040727
  Transmission Date: 20050211
  Serious: Yes (Other)
  Sender: FDA-Public Use
  Company Number: 2004225562JP

PATIENT
  Age: 70 Year
  Sex: Male

DRUGS (1)
  1. SULFASALAZINE [Suspect]

REACTIONS (2)
  - DISEASE PROGRESSION [None]
  - SPLENOMEGALY [None]
